FAERS Safety Report 8745868 (Version 2)
Quarter: 2012Q4

REPORT INFORMATION
  Report Type: Report from Study
  Country: US (occurrence: US)
  Receive Date: 20120827
  Receipt Date: 20120930
  Transmission Date: 20130627
  Serious: Yes (Hospitalization)
  Sender: FDA-Public Use
  Company Number: US-009507513-1208USA009348

PATIENT

DRUGS (11)
  1. BLINDED BOCEPREVIR [Suspect]
     Indication: HEPATITIS C
  2. UNSPECIFIED INGREDIENT [Suspect]
     Indication: HEPATITIS C
  3. BLINDED PEGINTERFERON ALFA-2B [Suspect]
     Indication: HEPATITIS C
  4. BLINDED PLACEBO [Suspect]
     Indication: HEPATITIS C
  5. BLINDED POST TRIAL THERAPY [Suspect]
     Indication: HEPATITIS C
  6. BLINDED POST TRIAL THERAPY [Suspect]
     Indication: HEPATITIS C
  7. BLINDED POST TRIAL THERAPY [Suspect]
     Indication: HEPATITIS C
  8. BLINDED PRE TRIAL THERAPY [Suspect]
     Indication: HEPATITIS C
  9. BLINDED PRE TRIAL THERAPY [Suspect]
     Indication: HEPATITIS C
  10. BLINDED PRE TRIAL THERAPY [Suspect]
     Indication: HEPATITIS C
  11. BLINDED RIBAVIRIN [Suspect]
     Indication: HEPATITIS C

REACTIONS (1)
  - Hip arthroplasty [Recovered/Resolved]
